FAERS Safety Report 20008073 (Version 5)
Quarter: 2022Q1

REPORT INFORMATION
  Report Type: Report from Study
  Country: FR (occurrence: FR)
  Receive Date: 20211028
  Receipt Date: 20220228
  Transmission Date: 20220423
  Serious: Yes (Other)
  Sender: FDA-Public Use
  Company Number: FR-ABBVIE-21K-056-4138386-00

PATIENT
  Age: 77 Year
  Sex: Female

DRUGS (2)
  1. CARBIDOPA\LEVODOPA [Suspect]
     Active Substance: CARBIDOPA\LEVODOPA
     Indication: Parkinson^s disease
     Route: 050
     Dates: start: 202110, end: 202110
  2. CARBIDOPA\LEVODOPA [Suspect]
     Active Substance: CARBIDOPA\LEVODOPA
     Dosage: CONTINUOUS FLOW RATE DURING THE DAY: 6.9 ML/H
     Route: 050
     Dates: start: 20211027, end: 2021

REACTIONS (7)
  - Autonomic nervous system imbalance [Not Recovered/Not Resolved]
  - Motor dysfunction [Not Recovered/Not Resolved]
  - Balance disorder [Unknown]
  - Fall [Unknown]
  - Erythema [Unknown]
  - Purulent discharge [Unknown]
  - Palpatory finding abnormal [Unknown]

NARRATIVE: CASE EVENT DATE: 20210101
